FAERS Safety Report 5864824-6 (Version None)
Quarter: 2008Q3

REPORT INFORMATION
  Report Type: 
  Country: None (occurrence: None)
  Receive Date: 20080829
  Receipt Date: 20080721
  Transmission Date: 20090109
  Serious: No
  Sender: FDA-Public Use
  Company Number: US-ABBOTT-08P-163-0464446-00

PATIENT
  Sex: Female

DRUGS (6)
  1. SIMCOR [Suspect]
     Indication: HYPERCHOLESTEROLAEMIA
     Route: 048
     Dates: start: 20080707, end: 20080718
  2. DESLORATADINE [Concomitant]
     Indication: HYPERSENSITIVITY
     Route: 048
  3. TROSPIUM CHLORIDE [Concomitant]
     Indication: HYPERTONIC BLADDER
     Route: 048
  4. FLUOXETINE [Concomitant]
     Indication: DEPRESSION
     Route: 048
  5. ACETYLSALICYLIC ACID SRT [Concomitant]
     Indication: PROPHYLAXIS
     Route: 048
     Dates: start: 20080707, end: 20080709
  6. IBUPROFEN [Concomitant]
     Indication: PROPHYLAXIS
     Route: 048

REACTIONS (3)
  - COLD SWEAT [None]
  - FLUSHING [None]
  - HYPERHIDROSIS [None]
